FAERS Safety Report 9051367 (Version 1)
Quarter: 2013Q1

REPORT INFORMATION
  Report Type: Spontaneous
  Country: BE (occurrence: BE)
  Receive Date: 20130206
  Receipt Date: 20130206
  Transmission Date: 20140127
  Serious: Yes (Hospitalization)
  Sender: FDA-Public Use
  Company Number: BE-PFIZER INC-2013043307

PATIENT
  Sex: Male

DRUGS (2)
  1. TOVIAZ [Suspect]
     Dosage: 4 MG, 1X/DAY
     Route: 048
  2. TOVIAZ [Suspect]
     Dosage: 8 MG, 1X/DAY
     Route: 048

REACTIONS (3)
  - Confusional state [Unknown]
  - Insomnia [Unknown]
  - Hallucination [Unknown]
